FAERS Safety Report 9850037 (Version 2)
Quarter: 2014Q2

REPORT INFORMATION
  Report Type: Spontaneous
  Country: US (occurrence: US)
  Receive Date: 20140128
  Receipt Date: 20140428
  Transmission Date: 20141212
  Serious: Yes (Hospitalization, Other)
  Sender: FDA-Public Use
  Company Number: US-ACORDA-ACO_101348_2014

PATIENT
  Age: 33 Year
  Sex: Female

DRUGS (4)
  1. AMPYRA [Suspect]
     Indication: MULTIPLE SCLEROSIS
     Dosage: 10 MG, BID
     Route: 048
     Dates: end: 20140115
  2. AMPYRA [Suspect]
     Dosage: 10 MG, QD
     Route: 048
     Dates: start: 20140116, end: 20140119
  3. AMPYRA [Suspect]
     Dosage: 10 MG, BID
     Route: 048
     Dates: start: 2014
  4. BACLOFEN [Concomitant]
     Indication: MUSCLE SPASMS
     Dosage: UNK,UNK

REACTIONS (9)
  - Obstructive uropathy [Recovered/Resolved]
  - Secondary progressive multiple sclerosis [Not Recovered/Not Resolved]
  - Decubitus ulcer [Recovered/Resolved]
  - Central nervous system lesion [Unknown]
  - Fall [Recovered/Resolved]
  - Contusion [Recovered/Resolved]
  - Mobility decreased [Recovering/Resolving]
  - Inappropriate schedule of drug administration [Unknown]
  - Therapy cessation [Unknown]
